FAERS Safety Report 15957567 (Version 1)
Quarter: 2019Q1

REPORT INFORMATION
  Report Type: Spontaneous
  Country: US (occurrence: US)
  Receive Date: 20190213
  Receipt Date: 20190213
  Transmission Date: 20190417
  Serious: Yes (Other)
  Sender: FDA-Public Use
  Company Number: US-ASTRAZENECA-2019SE23485

PATIENT
  Sex: Female

DRUGS (1)
  1. SYMBICORT [Suspect]
     Active Substance: BUDESONIDE\FORMOTEROL FUMARATE DIHYDRATE
     Indication: ASTHMA
     Route: 055

REACTIONS (16)
  - Cerebrovascular accident [Unknown]
  - Visual acuity reduced [Unknown]
  - Fatigue [Unknown]
  - Wrong product administered [Unknown]
  - Asthma [Unknown]
  - Dyspnoea [Unknown]
  - Gastrooesophageal reflux disease [Unknown]
  - Malaise [Unknown]
  - Lung disorder [Unknown]
  - Sinusitis [Unknown]
  - Pyrexia [Unknown]
  - Migraine [Unknown]
  - Back pain [Unknown]
  - Amnesia [Unknown]
  - Overdose [Unknown]
  - Abdominal distension [Unknown]

NARRATIVE: CASE EVENT DATE: 20181217
